FAERS Safety Report 6826806-7 (Version None)
Quarter: 2010Q3

REPORT INFORMATION
  Report Type: 
  Country: None (occurrence: None)
  Receive Date: 20100709
  Receipt Date: 20100701
  Transmission Date: 20110219
  Serious: Yes (Other)
  Sender: FDA-Public Use
  Company Number: BR-ROCHE-670906

PATIENT
  Sex: Female
  Weight: 74 kg

DRUGS (1)
  1. TAMIFLU [Suspect]
     Route: 048
     Dates: start: 20090904, end: 20090910

REACTIONS (2)
  - ABORTION SPONTANEOUS [None]
  - FOETAL MALFORMATION [None]
